FAERS Safety Report 12143130 (Version 1)
Quarter: 2016Q1

REPORT INFORMATION
  Report Type: Report from Study
  Country: US (occurrence: US)
  Receive Date: 20160303
  Receipt Date: 20160303
  Transmission Date: 20160526
  Serious: Yes (Hospitalization)
  Sender: FDA-Public Use
  Company Number: US-BIOGEN-2015BI082982

PATIENT
  Age: 63 Year
  Sex: Male

DRUGS (1)
  1. PLEGRIDY [Suspect]
     Active Substance: PEGINTERFERON BETA-1A
     Indication: MULTIPLE SCLEROSIS
     Route: 058
     Dates: start: 20141204

REACTIONS (7)
  - Hip fracture [Not Recovered/Not Resolved]
  - Hemiparesis [Not Recovered/Not Resolved]
  - Urinary tract infection [Recovered/Resolved]
  - Influenza like illness [Not Recovered/Not Resolved]
  - Nephrolithiasis [Recovered/Resolved]
  - Pyrexia [Recovered/Resolved]
  - Hemianaesthesia [Unknown]

NARRATIVE: CASE EVENT DATE: 20141204
